FAERS Safety Report 17990623 (Version 2)
Quarter: 2020Q3

REPORT INFORMATION
  Report Type: Spontaneous
  Country: SE (occurrence: SE)
  Receive Date: 20200707
  Receipt Date: 20200901
  Transmission Date: 20201103
  Serious: Yes (Hospitalization)
  Sender: FDA-Public Use
  Company Number: SE-CELGENEUS-SWE-20200700981

PATIENT
  Age: 80 Year
  Sex: Male
  Weight: 83 kg

DRUGS (15)
  1. DARATUMUMAB [Concomitant]
     Active Substance: DARATUMUMAB
     Indication: PLASMA CELL MYELOMA
     Dosage: 1312 MILLIGRAM
     Route: 041
     Dates: start: 20151022, end: 20200628
  2. NIFEREX [Concomitant]
     Indication: KNEE OPERATION
     Dosage: 100 MILLIGRAM
     Route: 048
     Dates: start: 20190310
  3. CEFOTAXIME [Concomitant]
     Active Substance: CEFOTAXIME SODIUM
     Indication: CHOLECYSTITIS
     Dosage: 3 GRAM
     Route: 041
     Dates: start: 20190414
  4. DEXAMETHASONE. [Suspect]
     Active Substance: DEXAMETHASONE
     Indication: PLASMA CELL MYELOMA
     Dosage: 40 MILLIGRAM
     Route: 048
     Dates: start: 20151022, end: 20200618
  5. ISOSORBIDMONONITRAT [Concomitant]
     Active Substance: ISOSORBIDE MONONITRATE
     Indication: ISCHAEMIC HEART DISEASE PROPHYLAXIS
     Dosage: 60 MILLIGRAM
     Route: 048
     Dates: start: 20140714
  6. KLINDAMYCIN [Concomitant]
     Active Substance: CLINDAMYCIN PHOSPHATE
     Indication: INFECTION
     Dosage: 900 MILLIGRAM
     Route: 048
     Dates: start: 20160324
  7. METOPROLOL. [Concomitant]
     Active Substance: METOPROLOL
     Indication: HYPERTENSION
     Dosage: 50 MILLIGRAM
     Route: 048
  8. WARAN [Concomitant]
     Active Substance: WARFARIN SODIUM
     Indication: PULMONARY EMBOLISM
     Route: 048
  9. OXYCONTIN [Concomitant]
     Active Substance: OXYCODONE HYDROCHLORIDE
     Indication: BACK PAIN
     Dosage: 20 MILLIGRAM
     Route: 048
  10. KALEROID [Concomitant]
     Active Substance: POTASSIUM CHLORIDE
     Indication: HYPOCALCAEMIA
     Route: 048
     Dates: start: 20160716
  11. HERACILLIN SODIUM [Concomitant]
     Indication: INFECTION
     Dosage: 1 GRAM
     Route: 048
     Dates: start: 20191107
  12. LENALIDOMIDE [Suspect]
     Active Substance: LENALIDOMIDE
     Indication: PLASMA CELL MYELOMA
     Dosage: 5 MILLIGRAM
     Route: 048
     Dates: start: 20151022, end: 20200617
  13. SIMVASTATIN. [Concomitant]
     Active Substance: SIMVASTATIN
     Indication: ISCHAEMIC HEART DISEASE PROPHYLAXIS
     Dosage: 40 MILLIGRAM
     Route: 048
  14. NIFEREX [Concomitant]
     Indication: HAEMOGLOBIN DECREASED
  15. ALVEDON [Concomitant]
     Active Substance: ACETAMINOPHEN
     Indication: BACK PAIN
     Route: 048

REACTIONS (1)
  - Spinal stenosis [Recovered/Resolved]

NARRATIVE: CASE EVENT DATE: 20200622
